FAERS Safety Report 7055754-5 (Version None)
Quarter: 2010Q4

REPORT INFORMATION
  Report Type: 
  Country: None (occurrence: None)
  Receive Date: 20101021
  Receipt Date: 20101014
  Transmission Date: 20110411
  Serious: Yes (Other)
  Sender: FDA-Public Use
  Company Number: RU-ROCHE-733972

PATIENT
  Age: 68 Year
  Sex: Female

DRUGS (1)
  1. BONIVA [Suspect]
     Indication: OSTEOPOROSIS
     Dosage: FREQUENCY: ONCE.  FORM: INFUSION.
     Route: 042
     Dates: start: 20100101

REACTIONS (1)
  - ORTHOSTATIC HYPOTENSION [None]
